FAERS Safety Report 24904755 (Version 1)
Quarter: 2025Q1

REPORT INFORMATION
  Report Type: Spontaneous
  Country: CA (occurrence: CA)
  Receive Date: 20250130
  Receipt Date: 20250130
  Transmission Date: 20250409
  Serious: Yes (Hospitalization, Other)
  Sender: CSL BEHRING
  Company Number: CA-BEH-2025193458

PATIENT
  Age: 68 Year
  Sex: Male
  Weight: 65 kg

DRUGS (2)
  1. HUMAN IMMUNOGLOBULIN G [Suspect]
     Active Substance: HUMAN IMMUNOGLOBULIN G
     Indication: Chronic inflammatory demyelinating polyradiculoneuropathy
     Dosage: 20 G, QW
     Route: 058
  2. HUMAN IMMUNOGLOBULIN G [Suspect]
     Active Substance: HUMAN IMMUNOGLOBULIN G
     Dosage: 28 G, QW
     Route: 058

REACTIONS (6)
  - Decreased appetite [Recovering/Resolving]
  - Intentional product use issue [Recovering/Resolving]
  - Intestinal obstruction [Recovering/Resolving]
  - Off label use [Recovering/Resolving]
  - Weight decreased [Recovering/Resolving]
  - Wrong technique in product usage process [Recovering/Resolving]
